FAERS Safety Report 10462348 (Version 1)
Quarter: 2014Q3

REPORT INFORMATION
  Report Type: Spontaneous
  Country: DE (occurrence: None)
  Receive Date: 20140911
  Receipt Date: 20140911
  Transmission Date: 20150326
  Serious: Yes (Life-Threatening, Hospitalization)
  Sender: FDA-Public Use
  Company Number: WIL-025-14-DE

PATIENT
  Age: 27 Year
  Sex: Male

DRUGS (1)
  1. WILATE [Suspect]
     Active Substance: HUMAN COAGULATION FACTOR VIII/VON WILLEBRAND FACTOR COMPLEX
     Indication: FACTOR VIII DEFICIENCY
     Route: 042
     Dates: start: 20140812, end: 20140812

REACTIONS (3)
  - Cold sweat [None]
  - Pallor [None]
  - Blood pressure decreased [None]

NARRATIVE: CASE EVENT DATE: 20140812
